FAERS Safety Report 9689298 (Version 1)
Quarter: 2013Q4

REPORT INFORMATION
  Report Type: Spontaneous
  Country: CA (occurrence: CA)
  Receive Date: 20131114
  Receipt Date: 20131114
  Transmission Date: 20140711
  Serious: Yes (Death)
  Sender: FDA-Public Use
  Company Number: CA-TEVA-444825USA

PATIENT
  Sex: Female

DRUGS (4)
  1. TREANDA [Suspect]
     Indication: NON-HODGKIN^S LYMPHOMA
     Route: 042
     Dates: start: 20130905
  2. ELTROXIN [Concomitant]
     Dosage: .15 MILLIGRAM DAILY;
     Route: 048
  3. BETAMETHASONE [Concomitant]
     Dosage: WEEKLY
     Route: 048
  4. LORAZEPAM [Concomitant]
     Dosage: AT BEDTIME
     Route: 048

REACTIONS (1)
  - Death [Fatal]
